FAERS Safety Report 9717037 (Version 1)
Quarter: 2013Q4

REPORT INFORMATION
  Report Type: Spontaneous
  Country: US (occurrence: US)
  Receive Date: 20131127
  Receipt Date: 20131127
  Transmission Date: 20140711
  Serious: No
  Sender: FDA-Public Use
  Company Number: US-GILEAD-2009-0020387

PATIENT
  Age: 61 Year
  Sex: Male
  Weight: 71.21 kg

DRUGS (15)
  1. LETAIRIS [Suspect]
     Indication: PULMONARY ARTERIAL HYPERTENSION
     Route: 048
     Dates: start: 20080701
  2. COREG [Concomitant]
  3. LISINOPRIL [Concomitant]
  4. LASIX [Concomitant]
  5. SPIRONOLACTONE [Concomitant]
  6. ALPHAGAN SOL [Concomitant]
  7. ADVAIR 250/50 [Concomitant]
  8. SPIRIVA [Concomitant]
  9. NASONEX [Concomitant]
  10. FEXOFENADINE [Concomitant]
  11. METFORMIN [Concomitant]
     Dates: start: 20090101
  12. PROSCAR [Concomitant]
  13. NEURONTIN [Concomitant]
  14. VIT C/BLOFLV [Concomitant]
  15. CENTRUM SILVER [Concomitant]

REACTIONS (1)
  - Palpitations [Not Recovered/Not Resolved]
